FAERS Safety Report 15855223 (Version 3)
Quarter: 2019Q2

REPORT INFORMATION
  Report Type: Spontaneous
  Country: US (occurrence: US)
  Receive Date: 20190122
  Receipt Date: 20190411
  Transmission Date: 20190711
  Serious: No
  Sender: FDA-Public Use
  Company Number: US-PFIZER INC-2019021049

PATIENT
  Age: 83 Year
  Sex: Male
  Weight: 70.3 kg

DRUGS (3)
  1. VIAGRA [Suspect]
     Active Substance: SILDENAFIL CITRATE
     Indication: ERECTILE DYSFUNCTION
     Dosage: 50 MG, 2X/DAY
  2. VIAGRA [Suspect]
     Active Substance: SILDENAFIL CITRATE
     Dosage: UNK
  3. IBUPROFEN. [Concomitant]
     Active Substance: IBUPROFEN
     Indication: ARTHROPATHY
     Dosage: 200 MG, 2X/DAY

REACTIONS (4)
  - Suspected counterfeit product [Unknown]
  - Off label use [Unknown]
  - Drug ineffective [Unknown]
  - Intentional product use issue [Unknown]
